FAERS Safety Report 5264693-1 (Version None)
Quarter: 2007Q1

REPORT INFORMATION
  Report Type: 
  Country: None (occurrence: None)
  Receive Date: 20070314
  Receipt Date: 20070301
  Transmission Date: 20070707
  Serious: Yes (Hospitalization)
  Sender: FDA-Public Use
  Company Number: PHHO2007FR00497

PATIENT
  Age: 51 Year
  Sex: Female

DRUGS (7)
  1. NEORAL [Suspect]
     Indication: RENAL TRANSPLANT
     Dosage: 250 MG/DAILY
     Route: 048
     Dates: start: 20060920
  2. NEORAL [Suspect]
     Dosage: 225 MG/DAILY
     Route: 048
  3. NEORAL [Suspect]
     Dosage: 175 MG/DAILY
     Route: 048
  4. CELLCEPT [Concomitant]
     Indication: RENAL TRANSPLANT
     Dosage: UNK, UNK
     Route: 048
     Dates: start: 20060929
  5. CORTANCYL [Concomitant]
     Indication: RENAL TRANSPLANT
     Dosage: 25 MG/DAILY
     Route: 048
     Dates: start: 20060926
  6. CORTANCYL [Concomitant]
     Dosage: 12.5 MG/DAILY
     Route: 048
  7. BACTRIM [Concomitant]

REACTIONS (4)
  - KIDNEY TRANSPLANT REJECTION [None]
  - NEPHRECTOMY [None]
  - PROTEINURIA [None]
  - RENAL TUBULAR NECROSIS [None]
